FAERS Safety Report 4284254-0 (Version None)
Quarter: 2004Q1

REPORT INFORMATION
  Report Type: 
  Country: None (occurrence: None)
  Receive Date: 20040130
  Receipt Date: 20040123
  Transmission Date: 20041129
  Serious: Yes (Hospitalization)
  Sender: FDA-Public Use
  Company Number: 03P-087-0245013-00

PATIENT
  Age: 3 Year
  Sex: Male
  Weight: 12 kg

DRUGS (1)
  1. CARTEOLOL HCL [Suspect]
     Indication: ARRHYTHMIA
     Dosage: 1 GM, 1 IN 1 D, PER ORAL
     Route: 048
     Dates: end: 20030501

REACTIONS (4)
  - CONVULSION [None]
  - CYANOSIS [None]
  - DEPRESSED LEVEL OF CONSCIOUSNESS [None]
  - HYPOGLYCAEMIA [None]
